FAERS Safety Report 8597058-5 (Version None)
Quarter: 2012Q3

REPORT INFORMATION
  Report Type: 
  Country: None (occurrence: None)
  Receive Date: 20120816
  Receipt Date: 20120807
  Transmission Date: 20120928
  Serious: Yes (Hospitalization)
  Sender: FDA-Public Use
  Company Number: IT-BIOGENIDEC-2012BI004226

PATIENT
  Age: 44 Year
  Sex: Male

DRUGS (3)
  1. LASIX [Concomitant]
     Indication: HYPERTENSION
  2. TYSABRI [Suspect]
     Indication: RELAPSING-REMITTING MULTIPLE SCLEROSIS
     Route: 042
     Dates: start: 20090601, end: 20110601
  3. RAMIPRIL [Concomitant]
     Indication: HYPERTENSION

REACTIONS (1)
  - CENTRAL NERVOUS SYSTEM LESION [None]
